FAERS Safety Report 6873469-0 (Version None)
Quarter: 2010Q3

REPORT INFORMATION
  Report Type: 
  Country: None (occurrence: None)
  Receive Date: 20100723
  Receipt Date: 20090119
  Transmission Date: 20110219
  Serious: No
  Sender: FDA-Public Use
  Company Number: US-PFIZER INC-2009159361

PATIENT
  Sex: Male
  Weight: 68.027 kg

DRUGS (3)
  1. CHANTIX [Suspect]
     Indication: SMOKING CESSATION THERAPY
     Dosage: 0.5 MG, 2X/DAY
     Dates: start: 20090113
  2. LIPITOR [Concomitant]
     Dosage: UNK
  3. WARFARIN SODIUM [Concomitant]
     Dosage: UNK

REACTIONS (1)
  - TINNITUS [None]
